FAERS Safety Report 7174852-9 (Version None)
Quarter: 2010Q4

REPORT INFORMATION
  Report Type: 
  Country: None (occurrence: None)
  Receive Date: 20101202
  Receipt Date: 20101116
  Transmission Date: 20110411
  Serious: Yes (Other)
  Sender: FDA-Public Use
  Company Number: THQ2010A03532

PATIENT

DRUGS (1)
  1. ACTOS [Suspect]
     Dosage: 15 MG
     Route: 048

REACTIONS (2)
  - CARDIOMEGALY [None]
  - PERICARDIAL EFFUSION [None]
